FAERS Safety Report 24083565 (Version 1)
Quarter: 2024Q3

REPORT INFORMATION
  Report Type: Spontaneous
  Country: FR (occurrence: FR)
  Receive Date: 20240712
  Receipt Date: 20240712
  Transmission Date: 20241016
  Serious: Yes (Hospitalization)
  Sender: RANBAXY
  Company Number: FR-SUN PHARMACEUTICAL INDUSTRIES LTD-2024RR-455317

PATIENT
  Age: 13 Year
  Sex: Female
  Weight: 60 kg

DRUGS (2)
  1. OLANZAPINE [Suspect]
     Active Substance: OLANZAPINE
     Indication: Poisoning deliberate
     Dosage: 40 MILLIGRAM, IN TOTAL
     Route: 048
     Dates: start: 20220510, end: 20220510
  2. LOXAPINE [Suspect]
     Active Substance: LOXAPINE
     Indication: Poisoning deliberate
     Dosage: UNK
     Route: 048
     Dates: start: 20220510, end: 20220510

REACTIONS (2)
  - Hypertension [Recovered/Resolved]
  - Sinus tachycardia [Recovered/Resolved]

NARRATIVE: CASE EVENT DATE: 20220510
